FAERS Safety Report 7648783-1 (Version None)
Quarter: 2011Q3

REPORT INFORMATION
  Report Type: 
  Country: None (occurrence: None)
  Receive Date: 20110801
  Receipt Date: 20110728
  Transmission Date: 20111222
  Serious: Yes (Death)
  Sender: FDA-Public Use
  Company Number: PHHY2011US68275

PATIENT
  Sex: Female

DRUGS (2)
  1. JEVITY [Concomitant]
  2. SANDOSTATIN LAR [Suspect]
     Dosage: 20 MG, UNK
     Route: 058
     Dates: start: 20110513

REACTIONS (2)
  - DEATH [None]
  - INCORRECT ROUTE OF DRUG ADMINISTRATION [None]
